FAERS Safety Report 13787238 (Version 1)
Quarter: 2017Q3

REPORT INFORMATION
  Report Type: Spontaneous
  Country: US (occurrence: US)
  Receive Date: 20170725
  Receipt Date: 20170725
  Transmission Date: 20171127
  Serious: No
  Sender: FDA-Public Use
  Company Number: US-JNJFOC-20170628782

PATIENT
  Age: 53 Year
  Sex: Female
  Weight: 58.06 kg

DRUGS (1)
  1. TYLENOL EXTRA STRENGTH [Suspect]
     Active Substance: ACETAMINOPHEN
     Indication: BACK PAIN
     Dosage: TAKE 3 TABLETS 3 TIMES IN DAY EVERY 3 HOURS
     Route: 048

REACTIONS (2)
  - Product physical issue [Unknown]
  - Overdose [Unknown]
